FAERS Safety Report 13632178 (Version 1)
Quarter: 2017Q2

REPORT INFORMATION
  Report Type: Spontaneous
  Country: US (occurrence: US)
  Receive Date: 20170531
  Receipt Date: 20170531
  Transmission Date: 20170830
  Serious: No
  Sender: FDA-Public Use
  Company Number: US-ASTELLAS-1445840

PATIENT
  Age: 69 Year
  Sex: Female

DRUGS (15)
  1. BUMETANIDE. [Concomitant]
     Active Substance: BUMETANIDE
     Route: 065
     Dates: start: 20140418
  2. VENTOLIN [Concomitant]
     Active Substance: ALBUTEROL SULFATE
     Route: 065
     Dates: start: 20140418
  3. TAMSULOSIN [Concomitant]
     Active Substance: TAMSULOSIN
     Dosage: 0.4MG
     Route: 065
     Dates: start: 20140418
  4. MORPHINE SULFATE. [Concomitant]
     Active Substance: MORPHINE SULFATE
     Route: 065
     Dates: start: 20140603
  5. ZOLOFT [Concomitant]
     Active Substance: SERTRALINE HYDROCHLORIDE
     Route: 065
     Dates: start: 20140410
  6. LEVOTHYROXIN [Concomitant]
     Active Substance: LEVOTHYROXINE
     Dosage: 100MCG
     Route: 065
     Dates: start: 20140418
  7. TARCEVA [Suspect]
     Active Substance: ERLOTINIB HYDROCHLORIDE
     Indication: PRODUCT USED FOR UNKNOWN INDICATION
     Dosage: DAILY
     Route: 048
     Dates: start: 20140417
  8. DIAZEPAM. [Concomitant]
     Active Substance: DIAZEPAM
     Dosage: 5MG/ML
     Route: 065
     Dates: start: 20140418
  9. MORPHINE [Concomitant]
     Active Substance: MORPHINE
     Route: 065
     Dates: start: 20140418
  10. LIPITOR [Concomitant]
     Active Substance: ATORVASTATIN CALCIUM
     Dosage: 10MG
     Route: 065
     Dates: start: 20140418
  11. SPIRIVA [Concomitant]
     Active Substance: TIOTROPIUM BROMIDE MONOHYDRATE
     Dosage: CAP HANDHLA
     Route: 065
     Dates: start: 20140418
  12. WARFARIN [Concomitant]
     Active Substance: WARFARIN
     Dosage: 10MG
     Route: 065
     Dates: start: 20140410
  13. SEROQUEL [Concomitant]
     Active Substance: QUETIAPINE FUMARATE
     Dosage: 100MG
     Route: 065
     Dates: start: 20140418
  14. PILOCARPINE. [Concomitant]
     Active Substance: PILOCARPINE
     Route: 065
     Dates: start: 20140418
  15. PANTOPRAZOLE [Concomitant]
     Active Substance: PANTOPRAZOLE
     Dosage: 20MG
     Route: 065

REACTIONS (2)
  - Fatigue [Not Recovered/Not Resolved]
  - Decreased appetite [Not Recovered/Not Resolved]

NARRATIVE: CASE EVENT DATE: 20140417
